FAERS Safety Report 8230732-9 (Version None)
Quarter: 2012Q1

REPORT INFORMATION
  Report Type: 
  Country: None (occurrence: None)
  Receive Date: 20120320
  Receipt Date: 20120309
  Transmission Date: 20120608
  Serious: Yes (Hospitalization, Other)
  Sender: FDA-Public Use
  Company Number: DSM-2012-00302

PATIENT
  Age: 84 Year
  Sex: Male

DRUGS (2)
  1. SEVIKAR (OLMESARTAN MEDOXOMIL, AMLODIPINE BESILATE) (TABLET) (OLMESART [Suspect]
     Indication: HYPERTENSION
     Dosage: ORAL
     Route: 048
  2. SOTALEX(SOTALOL HYDROCHLORIDE) (80 MILLIGRAM) (SOTALOL HYDROCHLORIDE) [Concomitant]

REACTIONS (4)
  - PANCREATITIS [None]
  - BILE DUCT OBSTRUCTION [None]
  - CONTRAINDICATION TO MEDICAL TREATMENT [None]
  - CHOLELITHIASIS [None]
